FAERS Safety Report 5685219-4 (Version None)
Quarter: 2008Q1

REPORT INFORMATION
  Report Type: 
  Country: None (occurrence: None)
  Receive Date: 20080328
  Receipt Date: 20080318
  Transmission Date: 20080703
  Serious: Yes (Other)
  Sender: FDA-Public Use
  Company Number: US-ELI_LILLY_AND_COMPANY-US200803004980

PATIENT
  Sex: Male

DRUGS (2)
  1. STRATTERA [Suspect]
     Dosage: 10 MG, UNK
     Route: 048
     Dates: start: 20071026, end: 20071201
  2. STRATTERA [Suspect]
     Dosage: 25 MG, 2/D
     Route: 048
     Dates: start: 20071201, end: 20071218

REACTIONS (5)
  - ALOPECIA [None]
  - BLOOD THYROID STIMULATING HORMONE INCREASED [None]
  - CONSTIPATION [None]
  - FATIGUE [None]
  - HEADACHE [None]
